FAERS Safety Report 23519836 (Version 1)
Quarter: 2024Q1

REPORT INFORMATION
  Report Type: Spontaneous
  Country: ES (occurrence: ES)
  Receive Date: 20240213
  Receipt Date: 20240213
  Transmission Date: 20240410
  Serious: Yes (Other)
  Sender: FDA-Public Use
  Company Number: ES-BAXTER-2024BAX011176

PATIENT
  Age: 5 Year
  Sex: Female
  Weight: 15 kg

DRUGS (3)
  1. EXTRANEAL [Suspect]
     Active Substance: CALCIUM CHLORIDE\ICODEXTRIN\MAGNESIUM CHLORIDE\SODIUM CHLORIDE\SODIUM LACTATE
     Dosage: 1 BAG DAILY
     Route: 033
     Dates: start: 20240104
  2. CALCIUM CL\DEXTROSE\MAGNESIUM CL\SODIUM BICAR\SODIUM CL\SODIUM LACT [Suspect]
     Active Substance: CALCIUM CHLORIDE\DEXTROSE MONOHYDRATE\MAGNESIUM CHLORIDE\SODIUM BICARBONATE\SODIUM CHLORIDE\SODIUM L
     Dosage: 1 BAG PER TREATMENT
     Route: 033
     Dates: start: 20240104
  3. CALCIUM CL\DEXTROSE\MAGNESIUM CL\SODIUM BICAR\SODIUM CL\SODIUM LACT [Suspect]
     Active Substance: CALCIUM CHLORIDE\DEXTROSE MONOHYDRATE\MAGNESIUM CHLORIDE\SODIUM BICARBONATE\SODIUM CHLORIDE\SODIUM L
     Dosage: 1 BAG PER TREATMENT
     Route: 033
     Dates: start: 20240104

REACTIONS (5)
  - Peritonitis bacterial [Recovered/Resolved]
  - Abdominal pain [Unknown]
  - Peritoneal cloudy effluent [Unknown]
  - Malaise [Unknown]
  - Peritoneal dialysis complication [Unknown]

NARRATIVE: CASE EVENT DATE: 20240118
